FAERS Safety Report 7954340-X (Version None)
Quarter: 2011Q4

REPORT INFORMATION
  Report Type: 
  Country: None (occurrence: None)
  Receive Date: 20111202
  Receipt Date: 20100517
  Transmission Date: 20120403
  Serious: Yes (Life-Threatening)
  Sender: FDA-Public Use
  Company Number: AU-GENZYME-RENA-1001386

PATIENT
  Sex: Female
  Weight: 50 kg

DRUGS (5)
  1. FERRO-GRADUMET [Concomitant]
     Indication: PRODUCT USED FOR UNKNOWN INDICATION
     Route: 065
  2. EPREX [Concomitant]
     Indication: PRODUCT USED FOR UNKNOWN INDICATION
     Route: 065
  3. RENAGEL [Suspect]
     Indication: HYPERPHOSPHATAEMIA
     Dosage: 4.8 G, QD
     Route: 048
     Dates: start: 20080424, end: 20080611
  4. CALCITRIOL [Concomitant]
     Indication: PRODUCT USED FOR UNKNOWN INDICATION
     Route: 065
  5. FOLIC ACID [Concomitant]
     Indication: PRODUCT USED FOR UNKNOWN INDICATION
     Route: 065

REACTIONS (6)
  - AMNESIA [None]
  - OCULAR HYPERAEMIA [None]
  - DISORIENTATION [None]
  - ADVERSE EVENT [None]
  - CONFUSIONAL STATE [None]
  - GRAND MAL CONVULSION [None]
